FAERS Safety Report 13055289 (Version 1)
Quarter: 2016Q4

REPORT INFORMATION
  Report Type: Spontaneous
  Country: US (occurrence: US)
  Receive Date: 20161222
  Receipt Date: 20161222
  Transmission Date: 20170207
  Serious: No
  Sender: FDA-Public Use
  Company Number: US-GLAXOSMITHKLINE-US2016GSK187806

PATIENT
  Age: 28 Year
  Sex: Female

DRUGS (1)
  1. BREO ELLIPTA [Suspect]
     Active Substance: FLUTICASONE FUROATE\VILANTEROL TRIFENATATE
     Indication: ASTHMA
     Dosage: UNK, 1D
     Dates: start: 20161111, end: 20161125

REACTIONS (3)
  - Aphonia [Recovering/Resolving]
  - Asthma [Unknown]
  - Dysphonia [Recovered/Resolved]

NARRATIVE: CASE EVENT DATE: 201611
